FAERS Safety Report 6784276-1 (Version None)
Quarter: 2010Q2

REPORT INFORMATION
  Report Type: 
  Country: None (occurrence: None)
  Receive Date: 20100622
  Receipt Date: 20100611
  Transmission Date: 20101027
  Serious: Yes (Death)
  Sender: FDA-Public Use
  Company Number: US-JNJFOC-20100503610

PATIENT
  Age: 8 Month
  Sex: Male

DRUGS (2)
  1. CONCENTRATED TYLENOL INFANT DROPS [Suspect]
     Route: 048
  2. CONCENTRATED TYLENOL INFANT DROPS [Suspect]
     Indication: TEETHING
     Dosage: AS NEEDED, ONLY SPARINGLY
     Route: 048

REACTIONS (4)
  - PRODUCT CONTAMINATION MICROBIAL [None]
  - PRODUCT CONTAMINATION PHYSICAL [None]
  - PRODUCT QUALITY ISSUE [None]
  - SUDDEN INFANT DEATH SYNDROME [None]
